FAERS Safety Report 4970262-0 (Version None)
Quarter: 2006Q2

REPORT INFORMATION
  Report Type: 
  Country: None (occurrence: None)
  Receive Date: 20060406
  Receipt Date: 20060404
  Transmission Date: 20061013
  Serious: Yes (Life-Threatening)
  Sender: FDA-Public Use
  Company Number: 2006-140592-NL

PATIENT
  Age: 37 Year
  Sex: Female

DRUGS (7)
  1. VECURONIUM BROMIDE [Suspect]
     Indication: MUSCLE RELAXANT THERAPY
     Route: 042
     Dates: start: 20060320, end: 20060320
  2. PROPOFOL [Concomitant]
  3. ONDANSETRON HYDROCHLORIDE [Concomitant]
  4. LIDOCAINE [Concomitant]
  5. DEXAMETHASONE [Concomitant]
  6. SUXAMETHONIUM CHLORIDE [Concomitant]
  7. ATROPINE SULFATE [Concomitant]

REACTIONS (3)
  - ERYTHEMA [None]
  - HYPOTENSION [None]
  - TACHYCARDIA [None]
